FAERS Safety Report 6715521-6 (Version None)
Quarter: 2010Q2

REPORT INFORMATION
  Report Type: 
  Country: None (occurrence: None)
  Receive Date: 20100507
  Receipt Date: 20100428
  Transmission Date: 20101027
  Serious: Yes (Other)
  Sender: FDA-Public Use
  Company Number: US-ROCHE-695777

PATIENT
  Sex: Female
  Weight: 125 kg

DRUGS (3)
  1. TAMIFLU [Suspect]
     Route: 065
     Dates: start: 20091001, end: 20091001
  2. LEVOTHYROXINE SODIUM [Concomitant]
     Indication: THYROID DISORDER
     Dates: start: 20070101
  3. NORETHINDRONE [Concomitant]
     Dosage: DRUG REPORTED AS ERRIN MINIPILL

REACTIONS (10)
  - CHEST PAIN [None]
  - DIARRHOEA [None]
  - DYSPNOEA [None]
  - FATIGUE [None]
  - HELICOBACTER INFECTION [None]
  - PRURITUS [None]
  - RASH [None]
  - URTICARIA [None]
  - VITAMIN D DEFICIENCY [None]
  - VOMITING [None]
